FAERS Safety Report 23775824 (Version 1)
Quarter: 2024Q2

REPORT INFORMATION
  Report Type: Other
  Country: IN (occurrence: None)
  Receive Date: 20240424
  Receipt Date: 20240424
  Transmission Date: 20240716
  Serious: Yes (Death, Other)
  Sender: FDA-Public Use
  Company Number: IN-ROCHE-3255950

PATIENT
  Age: 58 Year
  Sex: Female

DRUGS (1)
  1. KADCYLA [Suspect]
     Active Substance: ADO-TRASTUZUMAB EMTANSINE
     Indication: Breast cancer metastatic
     Dosage: INTERVAL 29 DAYS
     Route: 042
     Dates: start: 20210422

REACTIONS (5)
  - Cardiopulmonary failure [Fatal]
  - Diarrhoea [Unknown]
  - Hypotension [Unknown]
  - Metastases to lung [Unknown]
  - Off label use [Unknown]
